FAERS Safety Report 10460335 (Version 2)
Quarter: 2014Q4

REPORT INFORMATION
  Report Type: Spontaneous
  Country: US (occurrence: US)
  Receive Date: 20140917
  Receipt Date: 20141007
  Transmission Date: 20150528
  Serious: No
  Sender: FDA-Public Use
  Company Number: US-009507513-1409USA008395

PATIENT
  Age: 81 Year
  Sex: Female
  Weight: 73.47 kg

DRUGS (5)
  1. DICLOFENAC [Concomitant]
     Active Substance: DICLOFENAC
     Indication: PRODUCT USED FOR UNKNOWN INDICATION
     Dosage: UNK, UNKNOWN
  2. GABAPENTIN. [Concomitant]
     Active Substance: GABAPENTIN
     Indication: BACK DISORDER
     Dosage: UNK, UNKNOWN
  3. OXYTROL FOR WOMEN [Suspect]
     Active Substance: OXYBUTYNIN
     Indication: POLLAKIURIA
     Dosage: 1 DF, ONCE
     Route: 062
     Dates: start: 20140912, end: 20140914
  4. LEVOTHYROXINE SODIUM. [Concomitant]
     Active Substance: LEVOTHYROXINE SODIUM
     Indication: THYROID DISORDER
     Dosage: UNK, UNKNOWN
  5. LYRICA [Concomitant]
     Active Substance: PREGABALIN
     Indication: LIGAMENT SPRAIN
     Dosage: UNK, UNKNOWN

REACTIONS (3)
  - Application site pruritus [Recovered/Resolved]
  - Drug administered at inappropriate site [Unknown]
  - Application site rash [Recovered/Resolved]

NARRATIVE: CASE EVENT DATE: 201409
